FAERS Safety Report 16003541 (Version 1)
Quarter: 2019Q1

REPORT INFORMATION
  Report Type: Spontaneous
  Country: ES (occurrence: ES)
  Receive Date: 20190225
  Receipt Date: 20190225
  Transmission Date: 20190418
  Serious: Yes (Other)
  Sender: FDA-Public Use
  Company Number: ES-OCTA-GAM05019ES

PATIENT
  Age: 57 Year
  Sex: Female
  Weight: 47.5 kg

DRUGS (1)
  1. OCTAGAMOCTA [Suspect]
     Active Substance: HUMAN IMMUNOGLOBULIN G
     Indication: SELECTIVE IGG SUBCLASS DEFICIENCY
     Route: 042
     Dates: start: 20180117, end: 20181205

REACTIONS (1)
  - Hepatitis C antibody positive [Not Recovered/Not Resolved]

NARRATIVE: CASE EVENT DATE: 20181203
